FAERS Safety Report 4643143-X (Version None)
Quarter: 2005Q2

REPORT INFORMATION
  Report Type: 
  Country: None (occurrence: None)
  Receive Date: 20050422
  Receipt Date: 20050217
  Transmission Date: 20051028
  Serious: Yes (Other)
  Sender: FDA-Public Use
  Company Number: 2005034793

PATIENT
  Sex: Female
  Weight: 73.0291 kg

DRUGS (1)
  1. CELEBREX [Suspect]
     Indication: SURGERY
     Dosage: 200 MG (200 MG, 1 IN 1 D), ORAL
     Route: 048
     Dates: start: 19990101

REACTIONS (11)
  - ABDOMINAL PAIN UPPER [None]
  - APHAGIA [None]
  - BEDRIDDEN [None]
  - BLADDER PAIN [None]
  - BOWEL MOVEMENT IRREGULARITY [None]
  - DYSURIA [None]
  - GASTRIC DISORDER [None]
  - GASTROINTESTINAL PAIN [None]
  - PARKINSON'S DISEASE [None]
  - VISUAL DISTURBANCE [None]
  - WEIGHT DECREASED [None]
